FAERS Safety Report 20466040 (Version 2)
Quarter: 2022Q1

REPORT INFORMATION
  Report Type: Report from Study
  Country: SG (occurrence: SG)
  Receive Date: 20220212
  Receipt Date: 20220311
  Transmission Date: 20220424
  Serious: Yes (Other)
  Sender: FDA-Public Use
  Company Number: SG-JNJFOC-20220220101

PATIENT

DRUGS (2)
  1. RILPIVIRINE [Suspect]
     Active Substance: RILPIVIRINE
     Indication: HIV infection
     Route: 048
  2. ABACAVIR\LAMIVUDINE [Suspect]
     Active Substance: ABACAVIR\LAMIVUDINE
     Indication: HIV infection
     Dosage: 600/300 MG
     Route: 065

REACTIONS (13)
  - Lipodystrophy acquired [Unknown]
  - Virologic failure [Unknown]
  - Drug resistance [Unknown]
  - Insomnia [Unknown]
  - Mood altered [Unknown]
  - Abnormal dreams [Unknown]
  - Abdominal pain [Unknown]
  - Abdominal pain upper [Unknown]
  - Rash [Unknown]
  - Fatigue [Unknown]
  - Gynaecomastia [Unknown]
  - Memory impairment [Unknown]
  - Treatment noncompliance [Unknown]
